FAERS Safety Report 4683293-5 (Version None)
Quarter: 2005Q2

REPORT INFORMATION
  Report Type: 
  Country: None (occurrence: None)
  Receive Date: 20050606
  Receipt Date: 20050606
  Transmission Date: 20051028
  Serious: No
  Sender: FDA-Public Use
  Company Number: None

PATIENT
  Sex: Female
  Weight: 77.1115 kg

DRUGS (1)
  1. SALSALATE 750 MG ABLE LABS [Suspect]
     Indication: PSORIATIC ARTHROPATHY
     Dosage: 1 TAB IN AM 2 TABS IN PM ORAL
     Route: 048
     Dates: start: 20050209, end: 20050601

REACTIONS (4)
  - CHEST PAIN [None]
  - DRUG EFFECT DECREASED [None]
  - EXTRASYSTOLES [None]
  - PHARMACEUTICAL PRODUCT COMPLAINT [None]
